FAERS Safety Report 5741047-2 (Version None)
Quarter: 2008Q2

REPORT INFORMATION
  Report Type: 
  Country: None (occurrence: None)
  Receive Date: 20080516
  Receipt Date: 20080505
  Transmission Date: 20081010
  Serious: Yes (Other)
  Sender: FDA-Public Use
  Company Number: GB-PFIZER INC-2008039387

PATIENT
  Age: 44 Year
  Sex: Female

DRUGS (1)
  1. CHANTIX [Suspect]
     Indication: SMOKING CESSATION THERAPY
     Dosage: TEXT:0.5MG
     Dates: start: 20080325, end: 20080330

REACTIONS (2)
  - ANGER [None]
  - DEPRESSION SUICIDAL [None]
